FAERS Safety Report 5706551-1 (Version None)
Quarter: 2008Q2

REPORT INFORMATION
  Report Type: 
  Country: None (occurrence: None)
  Receive Date: 20080415
  Receipt Date: 20080402
  Transmission Date: 20081010
  Serious: Yes (Other)
  Sender: FDA-Public Use
  Company Number: US-ELI_LILLY_AND_COMPANY-US200804001178

PATIENT
  Age: 55 Year
  Sex: Female

DRUGS (2)
  1. GEMCITABINE HCL [Suspect]
     Indication: PANCREATIC CARCINOMA METASTATIC
     Dosage: 1000 MG/M2, OTHER
     Dates: start: 20061201, end: 20070501
  2. OXALIPLATIN [Concomitant]
     Indication: PANCREATIC CARCINOMA METASTATIC
     Dosage: 100 MG/M2, OTHER
     Dates: start: 20061201, end: 20070501

REACTIONS (2)
  - HEPATOTOXICITY [None]
  - PORTAL HYPERTENSION [None]
